FAERS Safety Report 7597030-8 (Version None)
Quarter: 2011Q3

REPORT INFORMATION
  Report Type: 
  Country: None (occurrence: None)
  Receive Date: 20110708
  Receipt Date: 20110705
  Transmission Date: 20111222
  Serious: Yes (Other)
  Sender: FDA-Public Use
  Company Number: FR-PFIZER INC-2011136927

PATIENT
  Age: 51 Year
  Sex: Female
  Weight: 82 kg

DRUGS (4)
  1. VENLAFAXINE HCL [Suspect]
     Indication: DEPRESSION
     Dosage: 150 MG IN THE MORNING, 75 MG IN THE EVENING
     Route: 048
     Dates: start: 20101108
  2. NEXIUM [Concomitant]
     Indication: GASTROOESOPHAGEAL REFLUX DISEASE
  3. BROMAZEPAM [Concomitant]
     Indication: ANXIETY
     Dosage: 6 MG, 1X/DAY
     Route: 048
     Dates: start: 20101108
  4. NEXIUM [Concomitant]
     Indication: HIATUS HERNIA
     Dosage: 20 MG, 1X/DAY
     Route: 048

REACTIONS (2)
  - GASTRITIS EROSIVE [None]
  - DEPRESSION [None]
